FAERS Safety Report 5087706-9 (Version None)
Quarter: 2006Q3

REPORT INFORMATION
  Report Type: 
  Country: None (occurrence: None)
  Receive Date: 20060821
  Receipt Date: 20060807
  Transmission Date: 20061208
  Serious: Yes (Other)
  Sender: FDA-Public Use
  Company Number: 2006097546

PATIENT
  Age: 62 Year
  Sex: Female
  Weight: 75.7507 kg

DRUGS (15)
  1. LYRICA [Suspect]
     Indication: NEUROPATHY PERIPHERAL
     Dosage: 150 MG (150 MG, 2 IN 1 D)
     Dates: start: 20060616, end: 20060805
  2. TRICOR [Suspect]
     Indication: FAMILIAL HYPERTRIGLYCERIDAEMIA
     Dates: start: 20060716
  3. ALL OTHER THERAPEUTIC PRODUCTS [Suspect]
     Indication: PAIN
  4. PREMARIN [Concomitant]
  5. MAXZIDE [Concomitant]
  6. PROTONIX [Concomitant]
  7. ACYCLOVIR [Concomitant]
  8. LEVOTHYROXINE SODIUM [Concomitant]
  9. RANITIDINE [Concomitant]
  10. LIPITOR [Concomitant]
  11. ATENOLOL [Concomitant]
  12. FIORINAL [Concomitant]
  13. TRAMADOL HCL [Concomitant]
  14. OXYCODONE HCL [Concomitant]
  15. NORTRIPTYLINE HCL [Concomitant]

REACTIONS (12)
  - ASTHENIA [None]
  - CONDITION AGGRAVATED [None]
  - DECREASED ACTIVITY [None]
  - DRUG EFFECT DECREASED [None]
  - GAIT DISTURBANCE [None]
  - HEADACHE [None]
  - INITIAL INSOMNIA [None]
  - MIDDLE INSOMNIA [None]
  - NAUSEA [None]
  - NEUROPATHY [None]
  - PAIN [None]
  - WEIGHT INCREASED [None]
